FAERS Safety Report 4823016-X (Version None)
Quarter: 2005Q4

REPORT INFORMATION
  Report Type: 
  Country: None (occurrence: None)
  Receive Date: 20051104
  Receipt Date: 20051027
  Transmission Date: 20060501
  Serious: Yes (Hospitalization)
  Sender: FDA-Public Use
  Company Number: 235181K05USA

PATIENT
  Age: 50 Year
  Sex: Female

DRUGS (7)
  1. REBIF [Suspect]
     Indication: MULTIPLE SCLEROSIS
     Dosage: SEE IMAGE
     Dates: start: 20050407, end: 20050811
  2. REBIF [Suspect]
     Indication: MULTIPLE SCLEROSIS
     Dosage: SEE IMAGE
     Dates: start: 20050901, end: 20051004
  3. BACLOFEN [Suspect]
     Dosage: SEE IMAGE
     Route: 048
     Dates: end: 20050728
  4. BACLOFEN [Suspect]
     Dosage: SEE IMAGE
     Route: 048
     Dates: start: 20050728
  5. NEURONTIN [Concomitant]
  6. EXTRA STRENGTH VICODIN (VICODIN) [Concomitant]
  7. SENOKOT (SENNA ALEXANDRINA) [Concomitant]

REACTIONS (7)
  - ATRIAL FIBRILLATION [None]
  - BACK PAIN [None]
  - CELLULITIS [None]
  - DEVICE FAILURE [None]
  - MULTIPLE SCLEROSIS RELAPSE [None]
  - PYREXIA [None]
  - URINARY TRACT INFECTION [None]
